FAERS Safety Report 5402112-2 (Version None)
Quarter: 2007Q3

REPORT INFORMATION
  Report Type: 
  Country: None (occurrence: None)
  Receive Date: 20070801
  Receipt Date: 20070720
  Transmission Date: 20080115
  Serious: Yes (Death)
  Sender: FDA-Public Use
  Company Number: HQWYE171323JUL07

PATIENT
  Age: 86 Year
  Sex: Female

DRUGS (10)
  1. CORDARONE [Suspect]
     Indication: ATRIAL FIBRILLATION
     Route: 042
     Dates: start: 20070528, end: 20070528
  2. CORDARONE [Suspect]
     Indication: ATRIAL FLUTTER
  3. MARCUMAR [Concomitant]
     Indication: ATRIAL FIBRILLATION
     Route: 048
     Dates: start: 20070527, end: 20070528
  4. MARCUMAR [Concomitant]
     Indication: ATRIAL FLUTTER
  5. DILTIAZEM [Concomitant]
     Indication: ATRIAL FIBRILLATION
     Route: 048
     Dates: start: 20070527, end: 20070529
  6. DILTIAZEM [Concomitant]
     Indication: ATRIAL FLUTTER
  7. METOPROLOL SUCCINATE [Concomitant]
     Indication: CARDIAC FAILURE
     Route: 048
     Dates: start: 20070527, end: 20070530
  8. CORDARONE [Suspect]
     Route: 048
     Dates: start: 20070528, end: 20070530
  9. CORDARONE [Suspect]
  10. COZAAR [Concomitant]
     Indication: CARDIAC FAILURE
     Route: 048
     Dates: start: 20070528, end: 20070529

REACTIONS (1)
  - LIVER DISORDER [None]
